FAERS Safety Report 7926830-7 (Version None)
Quarter: 2011Q4

REPORT INFORMATION
  Report Type: 
  Country: None (occurrence: None)
  Receive Date: 20111116
  Receipt Date: 20111102
  Transmission Date: 20120403
  Serious: Yes (Other)
  Sender: FDA-Public Use
  Company Number: 11-685

PATIENT
  Age: 73 Year
  Sex: Female
  Weight: 70 kg

DRUGS (6)
  1. ZOCOR [Concomitant]
  2. SYNTHROID [Concomitant]
  3. FOSAMAX (ALENDRONATE SODIUIM) [Concomitant]
  4. MELOXICAM [Concomitant]
  5. ACETAMINOPHEN [Concomitant]
  6. ALEVE (CAPLET) [Suspect]
     Indication: SCIATICA
     Dosage: 2 DF/TID/ORAL
     Route: 048
     Dates: start: 20111005, end: 20111015

REACTIONS (7)
  - GASTRIC DISORDER [None]
  - PANIC ATTACK [None]
  - WEIGHT DECREASED [None]
  - NAUSEA [None]
  - SUFFOCATION FEELING [None]
  - INSOMNIA [None]
  - ANXIETY [None]
